FAERS Safety Report 7523031-1 (Version None)
Quarter: 2011Q2

REPORT INFORMATION
  Report Type: 
  Country: None (occurrence: None)
  Receive Date: 20110603
  Receipt Date: 20101026
  Transmission Date: 20111010
  Serious: No
  Sender: FDA-Public Use
  Company Number: US-BAYER-201038579NA

PATIENT
  Age: 55 Year
  Sex: Female

DRUGS (3)
  1. UNCODEABLE ^UNCLASSIFIABLE^ [Concomitant]
  2. CEFDINIR [Concomitant]
     Dosage: 300 MG, UNK
  3. AVELOX [Suspect]
     Indication: SINUSITIS
     Dosage: 400 MG, UNK
     Route: 048
     Dates: start: 20101025

REACTIONS (3)
  - FEELING JITTERY [None]
  - INSOMNIA [None]
  - RESTLESSNESS [None]
